FAERS Safety Report 5277971-7 (Version None)
Quarter: 2007Q1

REPORT INFORMATION
  Report Type: 
  Country: None (occurrence: None)
  Receive Date: 20070321
  Receipt Date: 20070227
  Transmission Date: 20070707
  Serious: Yes (Death)
  Sender: FDA-Public Use
  Company Number: 6030806

PATIENT
  Age: 79 Year
  Sex: Male

DRUGS (5)
  1. FLUOXETINE [Suspect]
     Indication: DEPRESSION
     Dosage: 4,2857 MG  (30 MG, 1 IN 1 WK) ORAL
     Route: 048
     Dates: start: 20060808
  2. METHOTREXATE [Suspect]
     Indication: SERONEGATIVE ARTHRITIS
     Dosage: 5 MG ORAL
     Route: 048
     Dates: start: 20000710
  3. CO-DYDRAMOL (PARACETAMOL, DIHYDROCODEINE BITARTRATE) [Concomitant]
  4. DIGOXIN [Concomitant]
  5. FOLIC ACID [Concomitant]

REACTIONS (3)
  - PNEUMONIA [None]
  - PNEUMONITIS [None]
  - PULMONARY FIBROSIS [None]
